FAERS Safety Report 5794568-0 (Version None)
Quarter: 2008Q2

REPORT INFORMATION
  Report Type: 
  Country: None (occurrence: None)
  Receive Date: 20080625
  Receipt Date: 20080610
  Transmission Date: 20081010
  Serious: Yes (Other)
  Sender: FDA-Public Use
  Company Number: CLOF-1000192

PATIENT
  Age: 11 Year
  Sex: Female

DRUGS (17)
  1. CLOFARABINE (CLOFARABINE) SOLUTION FOR INFUSION [Suspect]
     Indication: ACUTE LYMPHOCYTIC LEUKAEMIA
     Dosage: 68 MG, INTRAVENOUS; 62 MG
     Route: 042
     Dates: start: 20070711, end: 20070715
  2. CLOFARABINE (CLOFARABINE) SOLUTION FOR INFUSION [Suspect]
     Indication: ACUTE LYMPHOCYTIC LEUKAEMIA
     Dosage: 68 MG, INTRAVENOUS; 62 MG
     Route: 042
     Dates: start: 20070801, end: 20070805
  3. SEPTRA [Concomitant]
  4. OMEPRAZOLE [Concomitant]
  5. VALACICLOVIR (VALACICLOVIR HYDROCHLORIDE) [Concomitant]
  6. RISEDRONATE SODIUM [Concomitant]
  7. DOMPERIDONE (DOMPERIDONE) [Concomitant]
  8. AMPHOTERICIN B [Concomitant]
  9. PIPERACILLIN SODIUM AND TAZOBACTAM SODIUM [Concomitant]
  10. TEICOPLANIN (TEICOPLANIN) [Concomitant]
  11. LENOGRASTIM (LENOGRASTIM) [Concomitant]
  12. ONDANSETRON HCL [Concomitant]
  13. METRONIDAZOLE (METRONIDAZOLE SODIUM) [Concomitant]
  14. CODEINE PHOSPHATE (CODEINE PHOSPHATE) [Concomitant]
  15. AMILORIDE HCL [Concomitant]
  16. MAGNESIUM GLYCEROPHOSPHATE (MAGNESIUM GLYCEROPHOSPHATE) [Concomitant]
  17. POTASSIUM CHLORIDE [Concomitant]

REACTIONS (4)
  - ALANINE AMINOTRANSFERASE INCREASED [None]
  - BLOOD BILIRUBIN INCREASED [None]
  - GAMMA-GLUTAMYLTRANSFERASE INCREASED [None]
  - LIVER FUNCTION TEST ABNORMAL [None]
